FAERS Safety Report 4719749-6 (Version None)
Quarter: 2005Q3

REPORT INFORMATION
  Report Type: 
  Country: None (occurrence: None)
  Receive Date: 20050721
  Receipt Date: 20040713
  Transmission Date: 20060218
  Serious: Yes (Other)
  Sender: FDA-Public Use
  Company Number: US-GLAXOSMITHKLINE-A0518085A

PATIENT
  Age: 65 Year
  Sex: Female

DRUGS (5)
  1. AVANDIA [Suspect]
     Dosage: 8MG PER DAY
     Route: 048
  2. AMARYL [Concomitant]
     Dosage: 2MG TWICE PER DAY
     Route: 048
  3. OSCAL-D [Concomitant]
     Indication: OSTEOPENIA
     Route: 048
  4. CALCIUM GLUCONATE [Concomitant]
     Indication: OSTEOPENIA
     Dosage: 600MG PER DAY
     Route: 048
  5. MULTI-VITAMIN [Concomitant]
     Indication: DRUG USE FOR UNKNOWN INDICATION
     Route: 048

REACTIONS (2)
  - ASTHENIA [None]
  - HYPOGLYCAEMIA [None]
